FAERS Safety Report 7257599-X (Version None)
Quarter: 2011Q1

REPORT INFORMATION
  Report Type: 
  Country: None (occurrence: None)
  Receive Date: 20110129
  Receipt Date: 20100625
  Transmission Date: 20110831
  Serious: No
  Sender: FDA-Public Use
  Company Number: US-ABBOTT-10P-163-0649396-00

PATIENT
  Sex: Female
  Weight: 68.1 kg

DRUGS (2)
  1. VECTICAL [Concomitant]
     Indication: PRODUCT USED FOR UNKNOWN INDICATION
     Route: 061
  2. HUMIRA [Suspect]
     Indication: PSORIASIS

REACTIONS (3)
  - INJECTION SITE PAIN [None]
  - FATIGUE [None]
  - DEVICE MALFUNCTION [None]
